FAERS Safety Report 24304313 (Version 1)
Quarter: 2024Q3

REPORT INFORMATION
  Report Type: Spontaneous
  Country: US (occurrence: US)
  Receive Date: 20240910
  Receipt Date: 20240910
  Transmission Date: 20241016
  Serious: No
  Sender: BRISTOL MYERS SQUIBB
  Company Number: US-BRISTOL-MYERS SQUIBB COMPANY-2024-144153

PATIENT
  Age: 65 Year
  Sex: Female
  Weight: 81.01 kg

DRUGS (1)
  1. LENALIDOMIDE [Suspect]
     Active Substance: LENALIDOMIDE
     Indication: Product used for unknown indication

REACTIONS (5)
  - Restlessness [Unknown]
  - Musculoskeletal discomfort [Unknown]
  - Headache [Unknown]
  - Pain [Unknown]
  - Sinus disorder [Unknown]
